FAERS Safety Report 14113940 (Version 2)
Quarter: 2017Q4

REPORT INFORMATION
  Report Type: Spontaneous
  Country: JP (occurrence: JP)
  Receive Date: 20171023
  Receipt Date: 20171117
  Transmission Date: 20180321
  Serious: Yes (Hospitalization, Other)
  Sender: FDA-Public Use
  Company Number: JP-SHIRE-JP201726938

PATIENT

DRUGS (1)
  1. FEIBA NF [Suspect]
     Active Substance: ANTI-INHIBITOR COAGULANT COMPLEX
     Indication: FACTOR IX INHIBITION
     Dosage: 1000 IU, 3X A WEEK
     Route: 042
     Dates: start: 201701, end: 20171010

REACTIONS (2)
  - Nephrotic syndrome [Recovered/Resolved]
  - Injection site haematoma [Recovering/Resolving]

NARRATIVE: CASE EVENT DATE: 20171010
